FAERS Safety Report 9546613 (Version 1)
Quarter: 2013Q3

REPORT INFORMATION
  Report Type: Spontaneous
  Country: DE (occurrence: DE)
  Receive Date: 20130924
  Receipt Date: 20130924
  Transmission Date: 20140515
  Serious: Yes (Other)
  Sender: FDA-Public Use
  Company Number: DE-ROCHE-1278830

PATIENT
  Sex: Male

DRUGS (1)
  1. ROFERON-A [Suspect]
     Indication: HAIRY CELL LEUKAEMIA
     Route: 065
     Dates: start: 1991

REACTIONS (1)
  - Nervous system disorder [Not Recovered/Not Resolved]
